FAERS Safety Report 8534385-1 (Version None)
Quarter: 2012Q3

REPORT INFORMATION
  Report Type: 
  Country: None (occurrence: None)
  Receive Date: 20120724
  Receipt Date: 20120719
  Transmission Date: 20120928
  Serious: Yes (Hospitalization)
  Sender: FDA-Public Use
  Company Number: IT-ABBOTT-12P-083-0957774-00

PATIENT
  Sex: Female

DRUGS (2)
  1. CEFTRIAXONE [Suspect]
     Indication: HYPERPYREXIA
     Route: 042
     Dates: start: 20120701, end: 20120710
  2. CLARITHROMYCIN [Suspect]
     Indication: HYPERPYREXIA
     Route: 042
     Dates: start: 20120628, end: 20120630

REACTIONS (3)
  - DRUG HYPERSENSITIVITY [None]
  - STEVENS-JOHNSON SYNDROME [None]
  - DERMATITIS ALLERGIC [None]
